FAERS Safety Report 22016632 (Version 2)
Quarter: 2023Q1

REPORT INFORMATION
  Report Type: Spontaneous
  Country: CN (occurrence: CN)
  Receive Date: 20230221
  Receipt Date: 20230223
  Transmission Date: 20230418
  Serious: Yes (Life-Threatening, Other)
  Sender: FDA-Public Use
  Company Number: CN-MLMSERVICE-20230210-4101541-1

PATIENT
  Age: 49 Year
  Sex: Female

DRUGS (10)
  1. PACLITAXEL [Suspect]
     Active Substance: PACLITAXEL
     Indication: Ovarian cancer metastatic
     Dosage: 210 MG, CYCLIC (4 CYCLES)
     Route: 042
     Dates: start: 20170529, end: 20170809
  2. CISPLATIN [Suspect]
     Active Substance: CISPLATIN
     Indication: Ovarian cancer metastatic
     Dosage: 110 MG, CYCLIC (1 CYCLE)
     Route: 042
     Dates: start: 20170914, end: 2017
  3. CISPLATIN [Suspect]
     Active Substance: CISPLATIN
     Dosage: 80 MG, CYCLIC (1 CYCLE)
     Route: 042
     Dates: start: 20171021, end: 2017
  4. CISPLATIN [Suspect]
     Active Substance: CISPLATIN
     Dosage: 80 MG, CYCLIC (1 CYCLE)
     Route: 042
     Dates: start: 20171122, end: 2017
  5. CISPLATIN [Suspect]
     Active Substance: CISPLATIN
     Dosage: UNK
  6. GEMCITABINE [Suspect]
     Active Substance: GEMCITABINE
     Indication: Ovarian cancer metastatic
     Dosage: 1.5 G, CYCLIC (ON D1, D8, D15)
     Route: 042
     Dates: start: 20170914, end: 2017
  7. GEMCITABINE [Suspect]
     Active Substance: GEMCITABINE
     Dosage: 1.2 G, CYCLIC (1.2 G ON D1)
     Route: 042
     Dates: start: 20171021, end: 20171021
  8. GEMCITABINE [Suspect]
     Active Substance: GEMCITABINE
     Dosage: 1.0 G, CYCLIC (1.0 G ON D8)
     Route: 042
     Dates: start: 20171028, end: 2017
  9. GEMCITABINE [Suspect]
     Active Substance: GEMCITABINE
     Dosage: 1.0 G, CYCLIC (1.0 G ON D1,D8)
     Route: 042
     Dates: start: 20171122, end: 2017
  10. CARBOPLATIN [Suspect]
     Active Substance: CARBOPLATIN
     Indication: Ovarian cancer metastatic
     Dosage: 460 MG, CYCLIC (4 CYCLES)
     Route: 042
     Dates: start: 20170529, end: 20170809

REACTIONS (1)
  - Myelosuppression [Unknown]

NARRATIVE: CASE EVENT DATE: 20170101
